FAERS Safety Report 5242507-3 (Version None)
Quarter: 2007Q1

REPORT INFORMATION
  Report Type: 
  Country: None (occurrence: None)
  Receive Date: 20070214
  Receipt Date: 20070205
  Transmission Date: 20070707
  Serious: Yes (Hospitalization)
  Sender: FDA-Public Use
  Company Number: SPV1-2007-00603

PATIENT
  Sex: Female

DRUGS (1)
  1. ADDERALL 10 [Suspect]
     Dates: start: 20070131

REACTIONS (2)
  - INTENTIONAL DRUG MISUSE [None]
  - MALAISE [None]
